FAERS Safety Report 5971024-8 (Version None)
Quarter: 2008Q4

REPORT INFORMATION
  Report Type: 
  Country: None (occurrence: None)
  Receive Date: 20081128
  Receipt Date: 20081105
  Transmission Date: 20090506
  Serious: No
  Sender: FDA-Public Use
  Company Number: US-JNJFOC-20081102165

PATIENT
  Age: 52 Year
  Sex: Female

DRUGS (5)
  1. FENTANYL TRANSDERMAL SYSTEM [Suspect]
     Indication: PAIN
     Dosage: 25-100
     Route: 062
  2. NAPROXEN [Concomitant]
     Route: 065
  3. HYDROCODONE BITARTRATE [Concomitant]
     Route: 065
  4. AMITRIPTYLENE [Concomitant]
     Route: 065
  5. FLEXERIL [Concomitant]
     Route: 065

REACTIONS (5)
  - DYSPHAGIA [None]
  - INCORRECT DOSE ADMINISTERED [None]
  - PAIN [None]
  - WITHDRAWAL SYNDROME [None]
  - WRONG TECHNIQUE IN DRUG USAGE PROCESS [None]
